FAERS Safety Report 7906086-1 (Version None)
Quarter: 2011Q4

REPORT INFORMATION
  Report Type: 
  Country: None (occurrence: None)
  Receive Date: 20111110
  Receipt Date: 20111102
  Transmission Date: 20120403
  Serious: Yes (Other)
  Sender: FDA-Public Use
  Company Number: US-NAPPMUNDI-USA-2011-0077251

PATIENT
  Age: 3 Year
  Sex: Male

DRUGS (3)
  1. BARBITURATES [Suspect]
     Indication: FOETAL EXPOSURE DURING PREGNANCY
  2. OXYCONTIN [Suspect]
     Indication: FOETAL EXPOSURE DURING PREGNANCY
  3. HEROIN [Suspect]
     Indication: FOETAL EXPOSURE DURING PREGNANCY

REACTIONS (7)
  - MENTAL IMPAIRMENT [None]
  - FOETAL EXPOSURE DURING PREGNANCY [None]
  - AUTISM [None]
  - AGGRESSION [None]
  - NEONATAL COMPLICATIONS OF SUBSTANCE ABUSE [None]
  - ANGER [None]
  - DEAFNESS [None]
